FAERS Safety Report 4955073-4 (Version None)
Quarter: 2006Q1

REPORT INFORMATION
  Report Type: 
  Country: None (occurrence: None)
  Receive Date: 20060322
  Receipt Date: 20060303
  Transmission Date: 20060701
  Serious: Yes (Life-Threatening, Hospitalization, Other)
  Sender: FDA-Public Use
  Company Number: US200603000892

PATIENT
  Age: 37 Year
  Sex: Female

DRUGS (3)
  1. HUMULIN R [Suspect]
     Dosage: SEE IMAGE
     Dates: start: 19990101
  2. HUMULIN R [Suspect]
     Dosage: SEE IMAGE
     Dates: start: 20050901
  3. INSULIN, ANIMAL (INSULIN, ANIMAL) [Suspect]
     Indication: DIABETES MELLITUS

REACTIONS (11)
  - ALLERGENIC DESENSITISATION PROCEDURE [None]
  - ANAPHYLACTIC REACTION [None]
  - ASTHMA [None]
  - DIABETES MELLITUS INADEQUATE CONTROL [None]
  - DRUG INEFFECTIVE [None]
  - HYPERSENSITIVITY [None]
  - MUSCLE ATROPHY [None]
  - PHARMACEUTICAL PRODUCT COMPLAINT [None]
  - RASH [None]
  - RHABDOMYOLYSIS [None]
  - TREMOR [None]
